FAERS Safety Report 15177942 (Version 1)
Quarter: 2018Q3

REPORT INFORMATION
  Report Type: Spontaneous
  Country: US (occurrence: US)
  Receive Date: 20180720
  Receipt Date: 20180720
  Transmission Date: 20181010
  Serious: Yes (Other)
  Sender: FDA-Public Use
  Company Number: US-LANNETT COMPANY, INC.-US-2018LAN000812

PATIENT
  Age: 39 Year
  Sex: Male

DRUGS (9)
  1. BUPIVICAINE [Suspect]
     Active Substance: BUPIVACAINE
     Indication: BACK PAIN
     Dosage: 3.343 MG, QD
     Route: 037
  2. BUPIVICAINE [Suspect]
     Active Substance: BUPIVACAINE
     Dosage: 0.013 MG, QD
     Route: 037
  3. BACLOFEN (20MG) [Suspect]
     Active Substance: BACLOFEN
     Dosage: REDUCED DOSE
     Route: 037
  4. BACLOFEN (20MG) [Suspect]
     Active Substance: BACLOFEN
     Dosage: 1.8 ?G, QD
     Route: 037
  5. BUPIVICAINE [Suspect]
     Active Substance: BUPIVACAINE
     Dosage: REDUCED DOSE
     Route: 037
  6. HYDROMORPHONE HYDROCHLORIDE (8MG) [Suspect]
     Active Substance: HYDROMORPHONE HYDROCHLORIDE
     Indication: BACK PAIN
     Dosage: 24.506 MG, QD
     Route: 037
  7. HYDROMORPHONE HYDROCHLORIDE (8MG) [Suspect]
     Active Substance: HYDROMORPHONE HYDROCHLORIDE
     Dosage: 0.100 MG, QD
     Route: 037
  8. BACLOFEN (20MG) [Suspect]
     Active Substance: BACLOFEN
     Indication: BACK PAIN
     Dosage: 447.4 ?G, QD
     Route: 037
  9. HYDROMORPHONE HYDROCHLORIDE (8MG) [Suspect]
     Active Substance: HYDROMORPHONE HYDROCHLORIDE
     Dosage: REDUCED DOSE
     Route: 037

REACTIONS (1)
  - Calcinosis [Unknown]
